FAERS Safety Report 4429324-9 (Version None)
Quarter: 2004Q3

REPORT INFORMATION
  Report Type: 
  Country: None (occurrence: None)
  Receive Date: 20040818
  Receipt Date: 20040818
  Transmission Date: 20050211
  Serious: Yes (Other)
  Sender: FDA-Public Use
  Company Number: None

PATIENT
  Age: 3 Year
  Sex: Male
  Weight: 16.3 kg

DRUGS (2)
  1. UNASYN [Suspect]
     Indication: CELLULITIS
     Dosage: 1000 MG ONCE INTRAVENOUS
     Route: 042
     Dates: start: 20040817, end: 20040817
  2. AUGMENTIN '125' [Concomitant]

REACTIONS (4)
  - BRADYPHRENIA [None]
  - CRYING [None]
  - DYSTONIA [None]
  - LETHARGY [None]
